FAERS Safety Report 17327511 (Version 1)
Quarter: 2020Q1

REPORT INFORMATION
  Report Type: Spontaneous
  Country: US (occurrence: US)
  Receive Date: 20200127
  Receipt Date: 20200127
  Transmission Date: 20200409
  Serious: Yes (Death, Other)
  Sender: FDA-Public Use
  Company Number: US-SHIRE-US201844445

PATIENT
  Age: 14 Year
  Sex: Male

DRUGS (1)
  1. INTUNIV [Suspect]
     Active Substance: GUANFACINE HYDROCHLORIDE
     Indication: PRODUCT USED FOR UNKNOWN INDICATION
     Dosage: UNK
     Route: 065

REACTIONS (12)
  - Cardiac arrest [Fatal]
  - Hyperglycaemia [Unknown]
  - Tachycardia [Unknown]
  - Coma [Fatal]
  - Acidosis [Unknown]
  - Pyrexia [Unknown]
  - Polyuria [Unknown]
  - Bradycardia [Unknown]
  - Blood creatinine increased [Unknown]
  - Hypotension [Unknown]
  - Respiratory arrest [Fatal]
  - Mydriasis [Unknown]
